FAERS Safety Report 8551608-3 (Version None)
Quarter: 2012Q3

REPORT INFORMATION
  Report Type: 
  Country: None (occurrence: None)
  Receive Date: 20120730
  Receipt Date: 20120720
  Transmission Date: 20120928
  Serious: Yes (Other)
  Sender: FDA-Public Use
  Company Number: US-ASTRAZENECA-2010SE52635

PATIENT
  Age: 79 Year
  Sex: Female

DRUGS (2)
  1. CHEMOTHERAPY [Suspect]
  2. CRESTOR [Suspect]
     Route: 048
     Dates: start: 20020101

REACTIONS (2)
  - DEAFNESS [None]
  - COLON CANCER [None]
